FAERS Safety Report 10770841 (Version 2)
Quarter: 2015Q2

REPORT INFORMATION
  Report Type: Spontaneous
  Country: US (occurrence: None)
  Receive Date: 20150206
  Receipt Date: 20150608
  Transmission Date: 20150821
  Serious: No
  Sender: FDA-Public Use
  Company Number: HYP201407-000044

PATIENT
  Age: 31 Year
  Sex: Female

DRUGS (1)
  1. RAVICTI [Suspect]
     Active Substance: GLYCEROL PHENYLBUTYRATE
     Indication: UREA CYCLE ENZYME DEFICIENCY
     Route: 048
     Dates: start: 20130701

REACTIONS (3)
  - Muscle twitching [None]
  - Dizziness [None]
  - Feeling drunk [None]

NARRATIVE: CASE EVENT DATE: 201407
